FAERS Safety Report 25984537 (Version 2)
Quarter: 2025Q4

REPORT INFORMATION
  Report Type: Report from Study
  Country: US (occurrence: US)
  Receive Date: 20251031
  Receipt Date: 20251201
  Transmission Date: 20260117
  Serious: Yes (Other)
  Sender: ABBVIE
  Company Number: US-ABBVIE-6521312

PATIENT
  Sex: Female

DRUGS (1)
  1. VENCLEXTA [Suspect]
     Active Substance: VENETOCLAX
     Indication: Chronic lymphocytic leukaemia
     Route: 048
     Dates: start: 20230619

REACTIONS (5)
  - Blindness [Unknown]
  - Fluid retention [Unknown]
  - Skin cancer [Unknown]
  - Oropharyngeal discomfort [Unknown]
  - Laboratory test abnormal [Unknown]
